FAERS Safety Report 19501904 (Version 1)
Quarter: 2021Q3

REPORT INFORMATION
  Report Type: Spontaneous
  Country: US (occurrence: US)
  Receive Date: 20210707
  Receipt Date: 20210707
  Transmission Date: 20211014
  Serious: Yes (Hospitalization)
  Sender: FDA-Public Use
  Company Number: None

PATIENT
  Age: 56 Year
  Sex: Female

DRUGS (12)
  1. ARIPIPRAZOLE. [Concomitant]
     Active Substance: ARIPIPRAZOLE
  2. TOPAMAX [Concomitant]
     Active Substance: TOPIRAMATE
  3. LEVOTHYROXINE. [Concomitant]
     Active Substance: LEVOTHYROXINE
  4. PROMETHAZINE [Concomitant]
     Active Substance: PROMETHAZINE HYDROCHLORIDE
  5. BUSPIRONE [Concomitant]
     Active Substance: BUSPIRONE HYDROCHLORIDE
  6. ABILIFY [Concomitant]
     Active Substance: ARIPIPRAZOLE
  7. BUSPAR [Concomitant]
     Active Substance: BUSPIRONE HYDROCHLORIDE
  8. NORTRIPTYLIN [Concomitant]
     Active Substance: NORTRIPTYLINE
  9. OCTREOTIDE. [Suspect]
     Active Substance: OCTREOTIDE
     Route: 058
     Dates: start: 20190523
  10. CYMBALTA [Concomitant]
     Active Substance: DULOXETINE HYDROCHLORIDE
  11. DULOXETINE. [Concomitant]
     Active Substance: DULOXETINE
  12. TOPIRAMATE. [Concomitant]
     Active Substance: TOPIRAMATE

REACTIONS (2)
  - Hospitalisation [None]
  - Therapy interrupted [None]
